FAERS Safety Report 13159236 (Version 2)
Quarter: 2017Q1

REPORT INFORMATION
  Report Type: Spontaneous
  Country: SE (occurrence: SE)
  Receive Date: 20170127
  Receipt Date: 20170328
  Transmission Date: 20170428
  Serious: Yes (Hospitalization)
  Sender: FDA-Public Use
  Company Number: SE-TAKEDA-2017TUS001613

PATIENT
  Sex: Male
  Weight: 78 kg

DRUGS (3)
  1. ENTYVIO [Suspect]
     Active Substance: VEDOLIZUMAB
     Indication: COLITIS ULCERATIVE
     Dosage: 300 MG, UNK
     Route: 065
     Dates: start: 20160330, end: 20161031
  2. ETALPHA [Concomitant]
     Active Substance: ALFACALCIDOL
     Indication: HYPOCALCAEMIA
     Dosage: 0.5 ?G, BID
     Dates: start: 20140619
  3. KALCIPOS D3 [Concomitant]
     Indication: HYPOCALCAEMIA
     Dosage: UNK UNK, QD
     Dates: start: 20160814

REACTIONS (2)
  - Tonsillitis [Recovered/Resolved]
  - Liver abscess [Recovered/Resolved]

NARRATIVE: CASE EVENT DATE: 20160815
